FAERS Safety Report 13994852 (Version 2)
Quarter: 2018Q3

REPORT INFORMATION
  Report Type: Report from Study
  Country: US (occurrence: US)
  Receive Date: 20170921
  Receipt Date: 20180717
  Transmission Date: 20181010
  Serious: Yes (Hospitalization, Other)
  Sender: FDA-Public Use
  Company Number: US-BRISTOL-MYERS SQUIBB COMPANY-BMS-2017-082895

PATIENT
  Sex: Female
  Weight: 87.98 kg

DRUGS (2)
  1. APIXABAN [Suspect]
     Active Substance: APIXABAN
     Indication: PRODUCT USED FOR UNKNOWN INDICATION
     Dosage: 2.5 MG, BID
     Route: 065
  2. APIXABAN [Suspect]
     Active Substance: APIXABAN
     Indication: PRODUCT USED FOR UNKNOWN INDICATION
     Dosage: 5 MG, BID
     Route: 065

REACTIONS (7)
  - Thrombosis [Unknown]
  - Goitre [Unknown]
  - Blood iron decreased [Unknown]
  - Headache [Unknown]
  - Auditory disorder [Unknown]
  - Skin ulcer [Unknown]
  - Skin ulcer haemorrhage [Unknown]
